FAERS Safety Report 15549001 (Version 4)
Quarter: 2021Q4

REPORT INFORMATION
  Report Type: Spontaneous
  Country: JP (occurrence: JP)
  Receive Date: 20181025
  Receipt Date: 20211028
  Transmission Date: 20220303
  Serious: Yes (Congenital Anomaly, Other)
  Sender: FDA-Public Use
  Company Number: JP-ASTELLAS-2018JP019502

PATIENT
  Age: 0 Day
  Sex: Male
  Weight: 3 kg

DRUGS (8)
  1. PROGRAF [Suspect]
     Active Substance: TACROLIMUS
     Indication: Juvenile idiopathic arthritis
     Route: 064
     Dates: start: 201710, end: 20180815
  2. PROGRAF [Suspect]
     Active Substance: TACROLIMUS
     Indication: Rheumatoid arthritis
  3. CIMZIA [Concomitant]
     Active Substance: CERTOLIZUMAB PEGOL
     Indication: Juvenile idiopathic arthritis
     Route: 064
     Dates: end: 20180815
  4. CIMZIA [Concomitant]
     Active Substance: CERTOLIZUMAB PEGOL
     Indication: Rheumatoid arthritis
  5. PREDNISOLONE [Concomitant]
     Active Substance: PREDNISOLONE
     Indication: Product used for unknown indication
     Route: 064
     Dates: start: 201710, end: 20180815
  6. SULFASALAZINE [Concomitant]
     Active Substance: SULFASALAZINE
     Indication: Product used for unknown indication
     Route: 064
     Dates: start: 201710, end: 20180815
  7. FOLIC ACID [Concomitant]
     Active Substance: FOLIC ACID
     Indication: Product used for unknown indication
     Route: 064
     Dates: start: 201710, end: 20180815
  8. Calfina [Concomitant]
     Indication: Product used for unknown indication
     Dosage: 0.5 ?G, ONCE DAILY
     Route: 064
     Dates: start: 201710, end: 20180815

REACTIONS (2)
  - Umbilical cord around neck [Recovered/Resolved]
  - Tooth malformation [Not Recovered/Not Resolved]

NARRATIVE: CASE EVENT DATE: 20180815
